FAERS Safety Report 25369885 (Version 1)
Quarter: 2025Q2

REPORT INFORMATION
  Report Type: Spontaneous
  Country: GB (occurrence: GB)
  Receive Date: 20250528
  Receipt Date: 20250528
  Transmission Date: 20250717
  Serious: Yes (Other)
  Sender: UCB
  Company Number: GB-UCBSA-2025031098

PATIENT
  Sex: Female

DRUGS (2)
  1. KEPPRA [Suspect]
     Active Substance: LEVETIRACETAM
     Indication: Product used for unknown indication
     Dates: start: 2007, end: 2013
  2. KEPPRA [Suspect]
     Active Substance: LEVETIRACETAM
     Dates: start: 2021

REACTIONS (3)
  - Myoclonus [Recovered/Resolved]
  - Feeling abnormal [Recovered/Resolved]
  - Product physical issue [Unknown]
